FAERS Safety Report 18151531 (Version 2)
Quarter: 2020Q4

REPORT INFORMATION
  Report Type: Report from Study
  Country: None (occurrence: US)
  Receive Date: 20200814
  Receipt Date: 20201026
  Transmission Date: 20210113
  Serious: Yes (Hospitalization, Other)
  Sender: FDA-Public Use
  Company Number: US-ABBVIE-19K-163-2916960-00

PATIENT
  Age: 65 Year
  Sex: Female
  Weight: 48.58 kg

DRUGS (9)
  1. SYNTHROID [Suspect]
     Active Substance: LEVOTHYROXINE SODIUM
     Indication: HYPOTHYROIDISM
     Route: 048
     Dates: start: 1998
  2. SYNTHROID [Suspect]
     Active Substance: LEVOTHYROXINE SODIUM
     Route: 048
     Dates: start: 201811, end: 2019
  3. SYNTHROID [Suspect]
     Active Substance: LEVOTHYROXINE SODIUM
     Route: 048
     Dates: start: 2019, end: 2019
  4. CYTOMEL [Concomitant]
     Active Substance: LIOTHYRONINE SODIUM
     Indication: PRODUCT USED FOR UNKNOWN INDICATION
  5. SYNTHROID [Suspect]
     Active Substance: LEVOTHYROXINE SODIUM
     Route: 048
     Dates: start: 2019
  6. DILANTIN [Concomitant]
     Active Substance: PHENYTOIN
     Indication: SEIZURE
  7. SYNTHROID [Suspect]
     Active Substance: LEVOTHYROXINE SODIUM
     Route: 048
     Dates: start: 2019, end: 2019
  8. SYNTHROID [Suspect]
     Active Substance: LEVOTHYROXINE SODIUM
     Route: 048
  9. SYNTHROID [Suspect]
     Active Substance: LEVOTHYROXINE SODIUM
     Route: 048

REACTIONS (21)
  - Nerve injury [Recovered/Resolved]
  - Pyrexia [Not Recovered/Not Resolved]
  - Feeling abnormal [Unknown]
  - Illness [Unknown]
  - Thyroid function test abnormal [Unknown]
  - Unevaluable event [Unknown]
  - Fatigue [Unknown]
  - Weight increased [Recovered/Resolved]
  - Mental fatigue [Not Recovered/Not Resolved]
  - Confusional state [Unknown]
  - Seizure [Recovered/Resolved]
  - Seizure [Unknown]
  - Drug intolerance [Unknown]
  - Anxiety [Not Recovered/Not Resolved]
  - Stress [Unknown]
  - Hospitalisation [Unknown]
  - Malaise [Unknown]
  - Blood test abnormal [Unknown]
  - Overdose [Unknown]
  - Road traffic accident [Recovered/Resolved]
  - Weight decreased [Recovered/Resolved]

NARRATIVE: CASE EVENT DATE: 2008
